FAERS Safety Report 23439916 (Version 1)
Quarter: 2024Q1

REPORT INFORMATION
  Report Type: Spontaneous
  Country: CN (occurrence: CN)
  Receive Date: 20240124
  Receipt Date: 20240124
  Transmission Date: 20240409
  Serious: Yes (Other)
  Sender: FDA-Public Use
  Company Number: CN-PFIZER INC-PV202400009046

PATIENT
  Age: 81 Year
  Sex: Male
  Weight: 46 kg

DRUGS (2)
  1. TYGACIL [Suspect]
     Active Substance: TIGECYCLINE
     Indication: Acinetobacter infection
     Dosage: 100 MG Q12H
     Route: 041
     Dates: start: 20240108, end: 20240116
  2. CEFOPERAZONE SODIUM\SULBACTAM SODIUM [Suspect]
     Active Substance: CEFOPERAZONE SODIUM\SULBACTAM SODIUM
     Indication: Acinetobacter infection
     Dosage: 4 G Q8H
     Route: 041
     Dates: start: 20240108, end: 20240115

REACTIONS (5)
  - Coagulopathy [Recovering/Resolving]
  - Condition aggravated [Recovering/Resolving]
  - Sepsis [Unknown]
  - Condition aggravated [Unknown]
  - Off label use [Unknown]

NARRATIVE: CASE EVENT DATE: 20240101
